FAERS Safety Report 5420940-4 (Version None)
Quarter: 2007Q3

REPORT INFORMATION
  Report Type: 
  Country: None (occurrence: None)
  Receive Date: 20070817
  Receipt Date: 20070817
  Transmission Date: 20080115
  Serious: Yes (Other)
  Sender: FDA-Public Use
  Company Number: None

PATIENT
  Age: 20 Year
  Sex: Male
  Weight: 58.9676 kg

DRUGS (1)
  1. NEXIUM [Suspect]
     Indication: IMPAIRED GASTRIC EMPTYING
     Dosage: 40 MG DAILY PO
     Route: 048
     Dates: start: 20070220, end: 20070809

REACTIONS (7)
  - ABNORMAL SENSATION IN EYE [None]
  - ANXIETY [None]
  - ASTHENIA [None]
  - CHILLS [None]
  - FATIGUE [None]
  - MALAISE [None]
  - MYALGIA [None]
